FAERS Safety Report 19509961 (Version 1)
Quarter: 2021Q3

REPORT INFORMATION
  Report Type: Spontaneous
  Country: US (occurrence: US)
  Receive Date: 20210708
  Receipt Date: 20210708
  Transmission Date: 20211014
  Serious: No
  Sender: FDA-Public Use
  Company Number: US-INTRA-CELLULAR THERAPIES, INC.-2021ICT00276

PATIENT
  Age: 27 Year
  Sex: Male

DRUGS (3)
  1. LITHIUM. [Concomitant]
     Active Substance: LITHIUM
  2. XANAX [Concomitant]
     Active Substance: ALPRAZOLAM
     Dosage: UNK UNK, 1X/DAY
     Route: 048
  3. CAPLYTA [Suspect]
     Active Substance: LUMATEPERONE
     Indication: BIPOLAR I DISORDER
     Dosage: 42 MG, 1X/DAY
     Route: 048

REACTIONS (5)
  - Off label use [Recovered/Resolved]
  - Burning sensation [Unknown]
  - Muscle strain [Unknown]
  - Chest pain [Unknown]
  - Temperature regulation disorder [Unknown]
